FAERS Safety Report 6025044-8 (Version None)
Quarter: 2008Q4

REPORT INFORMATION
  Report Type: 
  Country: None (occurrence: None)
  Receive Date: 20081230
  Receipt Date: 20081230
  Transmission Date: 20090506
  Serious: Yes (Life-Threatening, Hospitalization)
  Sender: FDA-Public Use
  Company Number: None

PATIENT
  Age: 46 Year
  Sex: Male
  Weight: 81.6475 kg

DRUGS (2)
  1. DEPO-MEDROL [Suspect]
     Indication: MUSCULOSKELETAL STIFFNESS
     Dosage: 1X EPIDURAL
     Route: 008
     Dates: start: 20050716, end: 20050716
  2. DEPO-MEDROL [Suspect]
     Indication: MUSCULOSKELETAL STIFFNESS
     Dosage: 1X EPIDURAL
     Route: 008
     Dates: start: 20050805, end: 20050805

REACTIONS (18)
  - BACK PAIN [None]
  - BLADDER DISORDER [None]
  - BURNING SENSATION [None]
  - CARPAL TUNNEL SYNDROME [None]
  - CONDITION AGGRAVATED [None]
  - DEPRESSION [None]
  - DUODENAL ULCER [None]
  - DYSURIA [None]
  - FATIGUE [None]
  - FLUID RETENTION [None]
  - GASTROINTESTINAL DISORDER [None]
  - MENISCUS LESION [None]
  - MONOPLEGIA [None]
  - MUSCLE SPASMS [None]
  - PAIN IN EXTREMITY [None]
  - PARALYSIS [None]
  - PROCTALGIA [None]
  - URINARY TRACT DISORDER [None]
